FAERS Safety Report 5786085-9 (Version None)
Quarter: 2008Q2

REPORT INFORMATION
  Report Type: 
  Country: None (occurrence: None)
  Receive Date: 20080620
  Receipt Date: 20080620
  Transmission Date: 20081010
  Serious: No
  Sender: FDA-Public Use
  Company Number: None

PATIENT
  Age: 64 Year
  Sex: Male
  Weight: 61.78 kg

DRUGS (2)
  1. VARENICLINE [Suspect]
     Dosage: 1 MG BID PO
     Route: 048
     Dates: start: 20071129, end: 20080119
  2. ALBUTEROL SULFATE AND IPRATROPIUM BROMIDE [Suspect]
     Dosage: 2 PUFF(S) TID INHALE
     Route: 055
     Dates: start: 20071123, end: 20080119

REACTIONS (5)
  - FALL [None]
  - PALPITATIONS [None]
  - SYNCOPE [None]
  - TACHYCARDIA [None]
  - VENTRICULAR TACHYCARDIA [None]
